FAERS Safety Report 5807210-7 (Version None)
Quarter: 2008Q3

REPORT INFORMATION
  Report Type: 
  Country: None (occurrence: None)
  Receive Date: 20080711
  Receipt Date: 20080704
  Transmission Date: 20090109
  Serious: Yes (Hospitalization)
  Sender: FDA-Public Use
  Company Number: B0528093A

PATIENT
  Age: 73 Year
  Sex: Male

DRUGS (2)
  1. AUGMENTIN '125' [Suspect]
     Indication: RESPIRATORY DISORDER
     Route: 048
     Dates: end: 20080422
  2. LOSARTAN POTASSIUM AND HYDROCHLOROTHIAZIDE [Suspect]
     Indication: DRUG USE FOR UNKNOWN INDICATION
     Route: 048
     Dates: end: 20080424

REACTIONS (6)
  - ASTHENIA [None]
  - DIAPHRAGMATIC DISORDER [None]
  - HYPOKALAEMIA [None]
  - HYPONATRAEMIA [None]
  - VISUAL IMPAIRMENT [None]
  - VOMITING PROJECTILE [None]
